FAERS Safety Report 20156518 (Version 1)
Quarter: 2021Q4

REPORT INFORMATION
  Report Type: Spontaneous
  Country: GB (occurrence: GB)
  Receive Date: 20211207
  Receipt Date: 20211207
  Transmission Date: 20220303
  Serious: Yes (Other)
  Sender: FDA-Public Use
  Company Number: GB-BAUSCH-BL-2021-039882

PATIENT
  Age: 33 Year
  Sex: Female

DRUGS (2)
  1. RIFAXIMIN [Suspect]
     Active Substance: RIFAXIMIN
     Indication: Gastrointestinal bacterial overgrowth
     Route: 048
     Dates: start: 20210917, end: 20210921
  2. RIFAXIMIN [Suspect]
     Active Substance: RIFAXIMIN
     Indication: Ill-defined disorder
     Route: 048
     Dates: start: 202111, end: 202111

REACTIONS (5)
  - Pharyngeal swelling [Not Recovered/Not Resolved]
  - Oropharyngeal pain [Not Recovered/Not Resolved]
  - Cough [Not Recovered/Not Resolved]
  - Lymphadenopathy [Not Recovered/Not Resolved]
  - Intentional product use issue [Unknown]

NARRATIVE: CASE EVENT DATE: 20210901
